FAERS Safety Report 7234105-7 (Version None)
Quarter: 2011Q1

REPORT INFORMATION
  Report Type: 
  Country: None (occurrence: None)
  Receive Date: 20110119
  Receipt Date: 20110110
  Transmission Date: 20110831
  Serious: Yes (Hospitalization)
  Sender: FDA-Public Use
  Company Number: FR-ASTRAZENECA-2011SE02431

PATIENT
  Age: 7200 Day

DRUGS (30)
  1. TOCO 500 [Concomitant]
  2. PULMOZYME [Concomitant]
  3. NEXIUM [Suspect]
     Route: 048
     Dates: start: 20100813
  4. MEROPENEM [Suspect]
     Route: 042
  5. TARGOCID [Suspect]
     Indication: CLOSTRIDIUM DIFFICILE SEPSIS
     Route: 042
     Dates: start: 20090301, end: 20100501
  6. TARGOCID [Suspect]
     Route: 042
  7. SERETIDE [Concomitant]
  8. MEROPENEM [Suspect]
     Route: 042
     Dates: start: 20100730, end: 20100814
  9. TARGOCID [Suspect]
     Indication: CYSTIC FIBROSIS
     Route: 042
     Dates: start: 20090301, end: 20100501
  10. TARGOCID [Suspect]
     Route: 042
     Dates: start: 20100624, end: 20100906
  11. DIFFU K [Concomitant]
  12. DELURSAN [Concomitant]
  13. MEROPENEM [Suspect]
     Indication: CLOSTRIDIUM DIFFICILE SEPSIS
     Route: 042
     Dates: start: 20090301, end: 20100501
  14. TARGOCID [Suspect]
     Route: 042
     Dates: start: 20100730, end: 20100814
  15. TARGOCID [Suspect]
     Route: 042
  16. MEROPENEM [Suspect]
     Route: 042
     Dates: start: 20100730, end: 20100814
  17. MEROPENEM [Suspect]
     Route: 042
  18. MULTIVITAMIN [Concomitant]
  19. SPORANOX [Concomitant]
  20. MEROPENEM [Suspect]
     Route: 042
     Dates: start: 20100624, end: 20100906
  21. TARGOCID [Suspect]
     Route: 042
     Dates: start: 20100705, end: 20100719
  22. TARGOCID [Suspect]
     Route: 042
     Dates: start: 20100624, end: 20100906
  23. MEROPENEM [Suspect]
     Route: 042
     Dates: start: 20100624, end: 20100906
  24. TARGOCID [Suspect]
     Route: 042
     Dates: start: 20100730, end: 20100814
  25. COLIMYCIN 3 MU [Concomitant]
     Dosage: 2 PER DAY, EVERY OTHER MONTH
  26. MEROPENEM [Suspect]
     Indication: CYSTIC FIBROSIS
     Route: 042
     Dates: start: 20090301, end: 20100501
  27. MEROPENEM [Suspect]
     Route: 042
     Dates: start: 20100705, end: 20100719
  28. MEROPENEM [Suspect]
     Route: 042
     Dates: start: 20100705, end: 20100719
  29. TARGOCID [Suspect]
     Route: 042
     Dates: start: 20100705, end: 20100719
  30. CREON [Concomitant]

REACTIONS (1)
  - AGRANULOCYTOSIS [None]
